FAERS Safety Report 4455101-9 (Version None)
Quarter: 2004Q3

REPORT INFORMATION
  Report Type: 
  Country: None (occurrence: None)
  Receive Date: 20040917
  Receipt Date: 20040913
  Transmission Date: 20050211
  Serious: Yes (Other)
  Sender: FDA-Public Use
  Company Number: HQWYE990413SEP04

PATIENT
  Age: 80 Year

DRUGS (2)
  1. MINOCIN [Suspect]
     Indication: PEMPHIGOID
     Dosage: 100 MG DAILY, ORAL
     Route: 048
  2. NICOTINAMIDE [Concomitant]

REACTIONS (1)
  - RENAL DISORDER [None]
